FAERS Safety Report 6388369-2 (Version None)
Quarter: 2009Q4

REPORT INFORMATION
  Report Type: 
  Country: None (occurrence: None)
  Receive Date: 20091005
  Receipt Date: 20090928
  Transmission Date: 20100525
  Serious: Yes (Hospitalization)
  Sender: FDA-Public Use
  Company Number: US-ELI_LILLY_AND_COMPANY-US200909006393

PATIENT
  Sex: Male
  Weight: 108.84 kg

DRUGS (14)
  1. BYETTA [Suspect]
     Indication: TYPE 2 DIABETES MELLITUS
     Dosage: 5 UG, 2/D
     Route: 058
  2. BYETTA [Suspect]
     Dosage: 10 UG, 2/D
     Route: 058
     Dates: end: 20080101
  3. BYETTA [Suspect]
     Dosage: 5 UG, 2/D
     Route: 058
     Dates: end: 20090921
  4. BYETTA [Suspect]
     Dosage: 5 UG, 2/D
     Route: 058
     Dates: start: 20090901
  5. DIOVAN [Concomitant]
     Dosage: 160 MG, DAILY (1/D)
  6. ACTOS                                   /AUS/ [Concomitant]
     Dosage: 45 MG, DAILY (1/D)
  7. TRICOR [Concomitant]
     Dosage: 145 MG, DAILY (1/D)
  8. AMLODIPINE BESYLATE [Concomitant]
     Dosage: 10 MG, DAILY (1/D)
  9. SPIRONOLACTONE [Concomitant]
     Dosage: UNK, DAILY (1/D)
  10. FORTAMET ER [Concomitant]
     Dosage: 500 MG, 2/D
  11. GLIMEPIRIDE [Concomitant]
     Dosage: 4 MG, DAILY (1/D)
  12. ROBAXIN [Concomitant]
     Dosage: 500 MG, 3/D
  13. NEURONTIN [Concomitant]
     Dosage: 300 MG, 3/D
  14. ULTRAM [Concomitant]
     Dosage: 50 MG, EVERY 6 HRS

REACTIONS (5)
  - ABDOMINAL PAIN UPPER [None]
  - BLOOD GLUCOSE INCREASED [None]
  - DRUG INEFFECTIVE [None]
  - PANCREATIC ENZYMES INCREASED [None]
  - PANCREATITIS [None]
